FAERS Safety Report 8088755-9 (Version None)
Quarter: 2012Q1

REPORT INFORMATION
  Report Type: 
  Country: None (occurrence: None)
  Receive Date: 20120128
  Receipt Date: 20110608
  Transmission Date: 20120608
  Serious: No
  Sender: FDA-Public Use
  Company Number: US-ABBOTT-11P-163-0731067-00

PATIENT
  Age: 15 Year
  Sex: Female

DRUGS (2)
  1. HUMIRA [Suspect]
     Indication: JUVENILE ARTHRITIS
     Dates: start: 20110524
  2. OTC ALLERGY MEDICATION [Concomitant]
     Indication: PRODUCT USED FOR UNKNOWN INDICATION

REACTIONS (1)
  - DRUG INEFFECTIVE [None]
